FAERS Safety Report 4786611-2 (Version None)
Quarter: 2005Q3

REPORT INFORMATION
  Report Type: 
  Country: None (occurrence: None)
  Receive Date: 20050927
  Receipt Date: 20050624
  Transmission Date: 20060218
  Serious: No
  Sender: FDA-Public Use
  Company Number: USA0506101549

PATIENT
  Sex: Female

DRUGS (2)
  1. STRATTERA [Suspect]
     Dosage: 25 MG
     Dates: start: 20040624
  2. HYDROXYZINE [Concomitant]

REACTIONS (2)
  - PROTEIN URINE PRESENT [None]
  - WEIGHT DECREASED [None]
